FAERS Safety Report 7715863-1 (Version None)
Quarter: 2011Q3

REPORT INFORMATION
  Report Type: 
  Country: None (occurrence: None)
  Receive Date: 20110829
  Receipt Date: 20110829
  Transmission Date: 20111222
  Serious: Yes (Other)
  Sender: FDA-Public Use
  Company Number: None

PATIENT
  Age: 28 Year
  Sex: Female
  Weight: 61.688 kg

DRUGS (1)
  1. PREDNISONE [Suspect]
     Indication: RHEUMATOID ARTHRITIS
     Dosage: 1 TABLET
     Route: 048
     Dates: start: 20110807, end: 20110825

REACTIONS (5)
  - FEAR [None]
  - SUICIDAL IDEATION [None]
  - EMOTIONAL DISORDER [None]
  - IRRITABILITY [None]
  - DEPRESSION [None]
